FAERS Safety Report 26088939 (Version 1)
Quarter: 2025Q4

REPORT INFORMATION
  Report Type: Spontaneous
  Country: JP (occurrence: JP)
  Receive Date: 20251125
  Receipt Date: 20251125
  Transmission Date: 20260117
  Serious: Yes (Other)
  Sender: EISAI
  Company Number: JP-Eisai-202511059_LEN-RCC_P_1

PATIENT
  Age: 64 Year
  Sex: Male

DRUGS (2)
  1. LENVATINIB [Suspect]
     Active Substance: LENVATINIB
     Indication: Renal cell carcinoma
     Dosage: DOSE AND FREQUENCY WERE UNKNOWN
     Route: 048
  2. PEMBROLIZUMAB [Concomitant]
     Active Substance: PEMBROLIZUMAB
     Indication: Renal cell carcinoma
     Dosage: DOSE AND FREQUENCY WERE UNKNOWN
     Route: 041

REACTIONS (4)
  - Adrenal insufficiency [Unknown]
  - Palmar-plantar erythrodysaesthesia syndrome [Unknown]
  - Hepatic function abnormal [Unknown]
  - Hypertension [Unknown]
